FAERS Safety Report 16661435 (Version 1)
Quarter: 2019Q3

REPORT INFORMATION
  Report Type: Spontaneous
  Country: US (occurrence: US)
  Receive Date: 20190802
  Receipt Date: 20190802
  Transmission Date: 20191004
  Serious: No
  Sender: FDA-Public Use
  Company Number: US-PFIZER INC-2019329652

PATIENT
  Age: 48 Year
  Sex: Female
  Weight: 61.69 kg

DRUGS (1)
  1. LYRICA [Suspect]
     Active Substance: PREGABALIN
     Dosage: UNK, TWICE A DAY

REACTIONS (2)
  - Drug withdrawal syndrome [Unknown]
  - Nausea [Unknown]
